FAERS Safety Report 15695654 (Version 1)
Quarter: 2018Q4

REPORT INFORMATION
  Report Type: Spontaneous
  Country: ES (occurrence: ES)
  Receive Date: 20181206
  Receipt Date: 20181206
  Transmission Date: 20190205
  Serious: Yes (Other)
  Sender: FDA-Public Use
  Company Number: ES-TEVA-2018-ES-982363

PATIENT
  Age: 59 Year
  Sex: Female
  Weight: 63 kg

DRUGS (2)
  1. DEMILOS [Concomitant]
     Active Substance: CALCIUM CARBONATE\CHOLECALCIFEROL
     Indication: OSTEOPOROSIS
     Dosage: 1 COMP. /24 H
     Route: 048
     Dates: start: 20180701
  2. IBANDRONIC ACIDACIDO IBANDRONICO SODIO MONOHIDRATO (2762MH) [Suspect]
     Active Substance: IBANDRONIC ACID
     Indication: OSTEOPOROSIS
     Dosage: 1  COMP. /MES
     Route: 048
     Dates: start: 20180701, end: 20180901

REACTIONS (4)
  - Osteitis [Recovered/Resolved]
  - Hyperhidrosis [Recovered/Resolved]
  - Vomiting [Recovered/Resolved]
  - Dizziness [Recovered/Resolved]

NARRATIVE: CASE EVENT DATE: 20180901
